FAERS Safety Report 19246166 (Version 2)
Quarter: 2021Q2

REPORT INFORMATION
  Report Type: Spontaneous
  Country: IN (occurrence: IN)
  Receive Date: 20210512
  Receipt Date: 20210528
  Transmission Date: 20210717
  Serious: Yes (Hospitalization, Other)
  Sender: FDA-Public Use
  Company Number: IN-SA-2021SA152346

PATIENT
  Sex: Female

DRUGS (2)
  1. ISONIAZID. [Suspect]
     Active Substance: ISONIAZID
     Dosage: 300 MG, 1X
  2. RIFAMPICIN [Suspect]
     Active Substance: RIFAMPIN
     Dosage: 450 MG, 1X

REACTIONS (14)
  - Faeces discoloured [Recovered/Resolved]
  - Generalised tonic-clonic seizure [Unknown]
  - Hyperbilirubinaemia [Recovered/Resolved]
  - Foaming at mouth [Unknown]
  - Toxicity to various agents [Unknown]
  - Gaze palsy [Unknown]
  - Chromaturia [Recovered/Resolved]
  - Accidental poisoning [Unknown]
  - Hypotonia [Unknown]
  - Metabolic acidosis [Recovering/Resolving]
  - Mydriasis [Unknown]
  - Overdose [Unknown]
  - Skin discolouration [Unknown]
  - Sweat discolouration [Recovered/Resolved]
